FAERS Safety Report 10919326 (Version 1)
Quarter: 2015Q1

REPORT INFORMATION
  Report Type: Spontaneous
  Country: US (occurrence: US)
  Receive Date: 20150316
  Receipt Date: 20150316
  Transmission Date: 20150721
  Serious: No
  Sender: FDA-Public Use
  Company Number: US-009507513-1503USA004042

PATIENT
  Age: 4 Year
  Sex: Male

DRUGS (8)
  1. OFATUMUMAB [Concomitant]
     Active Substance: OFATUMUMAB
     Dosage: 1160 MG/M2 FOR ALL OTHER TREATMENT WEEKS
     Route: 042
  2. OFATUMUMAB [Concomitant]
     Active Substance: OFATUMUMAB
     Indication: IMMUNOMODULATORY THERAPY
     Dosage: 173 MG/M2, AT WEEK 1
     Route: 042
  3. BORTEZOMIB [Concomitant]
     Active Substance: BORTEZOMIB
     Indication: IMMUNOMODULATORY THERAPY
     Dosage: 1.3 MG/M2 AT WEEKS 1-4 AND 9-12
     Route: 042
  4. HEXADROL [Suspect]
     Active Substance: DEXAMETHASONE
     Indication: PREMEDICATION
     Dosage: DAYS OF 1-4 OF TREATMENT WEEKS 15, 18, 34, 38, 69 AND 73
     Route: 048
  5. BORTEZOMIB [Concomitant]
     Active Substance: BORTEZOMIB
     Dosage: 1.3 MG/M2 TWICE WEEKLY AT WEEKS 15-16, 18-20, 34-35, 38-39, 69-70 AND 73-74
  6. METHOTREXATE [Concomitant]
     Active Substance: METHOTREXATE
     Indication: IMMUNOMODULATORY THERAPY
     Dosage: 0.5MG/KG WEEKLY
     Route: 048
  7. GLOBULIN, IMMUNE [Concomitant]
     Active Substance: HUMAN IMMUNOGLOBULIN G
     Indication: IMMUNOMODULATORY THERAPY
     Dosage: EVERY 4 WEEKS AT 500 MG/KG
     Route: 042
  8. SULFAMETHOXAZOLE (+) TRIMETHOPRIM [Concomitant]
     Active Substance: SULFAMETHOXAZOLE\TRIMETHOPRIM
     Indication: ANTIBIOTIC PROPHYLAXIS

REACTIONS (2)
  - Increased appetite [Unknown]
  - Weight increased [Unknown]
